FAERS Safety Report 6125123-0 (Version None)
Quarter: 2009Q1

REPORT INFORMATION
  Report Type: 
  Country: None (occurrence: None)
  Receive Date: 20090318
  Receipt Date: 20090304
  Transmission Date: 20090719
  Serious: Yes (Death)
  Sender: FDA-Public Use
  Company Number: MPS1-1000168

PATIENT
  Age: 21 Month
  Sex: Male
  Weight: 12.7 kg

DRUGS (1)
  1. ALDURAZYME [Suspect]
     Indication: MUCOPOLYSACCHARIDOSIS I
     Dosage: 8.7 MG, 1X/W, INTRAVENOUS
     Route: 042
     Dates: start: 20080528

REACTIONS (4)
  - ACUTE GRAFT VERSUS HOST DISEASE [None]
  - ACUTE RESPIRATORY DISTRESS SYNDROME [None]
  - BONE MARROW TRANSPLANT [None]
  - CARDIAC ARREST [None]
